FAERS Safety Report 6440409-8 (Version None)
Quarter: 2009Q4

REPORT INFORMATION
  Report Type: 
  Country: None (occurrence: None)
  Receive Date: 20091113
  Receipt Date: 20091111
  Transmission Date: 20100525
  Serious: Yes (Death, Hospitalization, Other)
  Sender: FDA-Public Use
  Company Number: PHHY2009BR49541

PATIENT
  Sex: Female

DRUGS (3)
  1. ENABLEX [Suspect]
     Route: 048
  2. PLAVIX [Concomitant]
  3. DIOSMIN [Concomitant]

REACTIONS (3)
  - CARDIO-RESPIRATORY ARREST [None]
  - FEELING ABNORMAL [None]
  - RENAL IMPAIRMENT [None]
